FAERS Safety Report 4752920-6 (Version None)
Quarter: 2005Q3

REPORT INFORMATION
  Report Type: 
  Country: None (occurrence: None)
  Receive Date: 20050823
  Receipt Date: 20050721
  Transmission Date: 20060218
  Serious: Yes (Hospitalization)
  Sender: FDA-Public Use
  Company Number: US-JNJFOC-20050705124

PATIENT

DRUGS (2)
  1. RISPERDAL [Suspect]
     Indication: SCHIZOPHRENIA
     Dosage: 50 MG, INTRA-MUSCULAR
     Route: 030
     Dates: start: 20050101, end: 20050101
  2. CLOZARIL [Concomitant]

REACTIONS (1)
  - SCHIZOPHRENIA [None]
